FAERS Safety Report 5263056-2 (Version None)
Quarter: 2007Q1

REPORT INFORMATION
  Report Type: 
  Country: None (occurrence: None)
  Receive Date: 20070312
  Receipt Date: 20060420
  Transmission Date: 20070707
  Serious: Yes (Other)
  Sender: FDA-Public Use
  Company Number: GB-BOEHRINGER INGELHEIM PHARMACEUTICALS, INC.-2006-UK-01136UK

PATIENT

DRUGS (1)
  1. PERSANTIN [Suspect]
     Route: 048

REACTIONS (2)
  - HEADACHE [None]
  - NEOPLASM MALIGNANT [None]
